FAERS Safety Report 4289896-4 (Version None)
Quarter: 2004Q1

REPORT INFORMATION
  Report Type: 
  Country: None (occurrence: None)
  Receive Date: 20040209
  Receipt Date: 20040129
  Transmission Date: 20041129
  Serious: Yes (Hospitalization, Other)
  Sender: FDA-Public Use
  Company Number: HQWYE756430JAN04

PATIENT
  Age: 37 Year
  Sex: Male

DRUGS (3)
  1. ADVIL [Suspect]
     Indication: HEADACHE
     Route: 048
     Dates: end: 20040104
  2. ASPEGIC 1000 [Suspect]
     Route: 048
     Dates: end: 20040104
  3. AMITRIPTYLINE HYDROCHLORIDE [Suspect]
     Route: 048

REACTIONS (1)
  - EPILEPSY [None]
